FAERS Safety Report 4582427-0 (Version None)
Quarter: 2005Q1

REPORT INFORMATION
  Report Type: 
  Country: None (occurrence: None)
  Receive Date: 20050127
  Receipt Date: 20040922
  Transmission Date: 20050727
  Serious: No
  Sender: FDA-Public Use
  Company Number: USA040979014

PATIENT
  Age: 5 Year
  Sex: Male
  Weight: 22 kg

DRUGS (2)
  1. STRATTERA [Suspect]
     Indication: PSYCHOMOTOR HYPERACTIVITY
     Dosage: 40 MG/1 DAY
     Dates: start: 20040601
  2. CLARITIN [Concomitant]

REACTIONS (2)
  - ABDOMINAL PAIN UPPER [None]
  - PRESCRIBED OVERDOSE [None]
